FAERS Safety Report 12145522 (Version 2)
Quarter: 2016Q1

REPORT INFORMATION
  Report Type: Spontaneous
  Country: IT (occurrence: IT)
  Receive Date: 20160304
  Receipt Date: 20160329
  Transmission Date: 20160526
  Serious: Yes (Hospitalization)
  Sender: FDA-Public Use
  Company Number: IT-TEVA-638916ACC

PATIENT
  Age: 51 Year
  Sex: Female

DRUGS (4)
  1. OLANZAPINE. [Suspect]
     Active Substance: OLANZAPINE
     Indication: PSYCHOTIC DISORDER
     Dosage: 20 MILLIGRAM DAILY;
     Route: 048
  2. OLANZAPINE. [Suspect]
     Active Substance: OLANZAPINE
     Dosage: TOOK 4 TABLETS AT ONE TIME
     Route: 048
     Dates: start: 20160115, end: 20160115
  3. DEPAKIN CHRONO - 300 MG COMPRESSE A RILASCIO PROLUNGATO [Suspect]
     Active Substance: VALPROATE SODIUM
     Dosage: 600 MILLIGRAM DAILY;
     Route: 048
  4. DEPAKIN CHRONO - 300 MG COMPRESSE A RILASCIO PROLUNGATO [Suspect]
     Active Substance: VALPROATE SODIUM
     Indication: BIPOLAR DISORDER
     Dosage: 14 DF TOTAL
     Route: 048
     Dates: start: 20160115, end: 20160115

REACTIONS (4)
  - Agitation [Recovered/Resolved]
  - Suicide attempt [Recovered/Resolved]
  - Overdose [Recovered/Resolved]
  - Dysphoria [Recovered/Resolved]

NARRATIVE: CASE EVENT DATE: 20160115
